FAERS Safety Report 16136792 (Version 1)
Quarter: 2019Q1

REPORT INFORMATION
  Report Type: Spontaneous
  Country: FR (occurrence: FR)
  Receive Date: 20190329
  Receipt Date: 20190329
  Transmission Date: 20190418
  Serious: Yes (Hospitalization)
  Sender: FDA-Public Use
  Company Number: PHHY2019FR069830

PATIENT
  Age: 27 Year
  Sex: Male
  Weight: 65 kg

DRUGS (4)
  1. TERCIAN [Suspect]
     Active Substance: CYAMEMAZINE
     Indication: INTENTIONAL OVERDOSE
     Dosage: 750 MG, TOTAL
     Route: 048
     Dates: start: 20190116, end: 20190116
  2. DULOXETINE. [Suspect]
     Active Substance: DULOXETINE
     Indication: INTENTIONAL OVERDOSE
     Dosage: 1260 MG, TOTAL
     Route: 048
     Dates: start: 20190116, end: 20190116
  3. OXAZEPAM. [Suspect]
     Active Substance: OXAZEPAM
     Indication: INTENTIONAL OVERDOSE
     Dosage: 1000 MG, TOTAL
     Route: 048
     Dates: start: 20190116, end: 20190116
  4. PARACETAMOL [Suspect]
     Active Substance: ACETAMINOPHEN
     Indication: INTENTIONAL OVERDOSE
     Dosage: 9000 MG, TOTAL
     Route: 048
     Dates: start: 20190116, end: 20190116

REACTIONS (4)
  - Bradypnoea [Recovered/Resolved]
  - Poisoning deliberate [Recovered/Resolved]
  - Toxicity to various agents [Recovered/Resolved]
  - Somnolence [Recovered/Resolved]

NARRATIVE: CASE EVENT DATE: 20190116
